FAERS Safety Report 6762375-8 (Version None)
Quarter: 2010Q2

REPORT INFORMATION
  Report Type: 
  Country: None (occurrence: None)
  Receive Date: 20100609
  Receipt Date: 20100602
  Transmission Date: 20101027
  Serious: Yes (Other)
  Sender: FDA-Public Use
  Company Number: ES-ROCHE-706918

PATIENT
  Age: 39 Year
  Sex: Female

DRUGS (1)
  1. ROACTEMRA [Suspect]
     Indication: RHEUMATOID ARTHRITIS
     Dosage: FORM: INFUSION
     Route: 042
     Dates: start: 20100201

REACTIONS (6)
  - ASTHENIA [None]
  - EYE SWELLING [None]
  - METRORRHAGIA [None]
  - RASH [None]
  - SKIN EXFOLIATION [None]
  - VOMITING [None]
